FAERS Safety Report 7516754-1 (Version None)
Quarter: 2011Q2

REPORT INFORMATION
  Report Type: 
  Country: None (occurrence: None)
  Receive Date: 20110601
  Receipt Date: 20110523
  Transmission Date: 20111010
  Serious: Yes (Death, Hospitalization)
  Sender: FDA-Public Use
  Company Number: MA-BRISTOL-MYERS SQUIBB COMPANY-15769417

PATIENT
  Age: 47 Year
  Sex: Male

DRUGS (3)
  1. VORICONAZOLE [Suspect]
  2. SOLU-MEDROL [Suspect]
     Indication: BRAIN OEDEMA
  3. AMPHOTERICIN B [Suspect]
     Indication: CEREBRAL ASPERGILLOSIS
     Dosage: 1DF=0.8-1MG/DAY

REACTIONS (6)
  - DIABETES MELLITUS [None]
  - BRAIN OEDEMA [None]
  - DIABETIC HYPEROSMOLAR COMA [None]
  - THROMBOCYTOPENIA [None]
  - MENINGITIS STAPHYLOCOCCAL [None]
  - RENAL IMPAIRMENT [None]
